FAERS Safety Report 9066236 (Version 1)
Quarter: 2013Q1

REPORT INFORMATION
  Report Type: Spontaneous
  Country: US (occurrence: US)
  Receive Date: 20130131
  Receipt Date: 20130131
  Transmission Date: 20140127
  Serious: No
  Sender: FDA-Public Use
  Company Number: US-ABBOTT-12P-163-1016618-00

PATIENT
  Age: 47 Year
  Sex: Female

DRUGS (1)
  1. HUMIRA [Suspect]
     Indication: CROHN^S DISEASE
     Dates: start: 2009

REACTIONS (5)
  - Injection site mass [Unknown]
  - Injection site bruising [Unknown]
  - Injection site pain [Not Recovered/Not Resolved]
  - Incorrect dose administered [Not Recovered/Not Resolved]
  - Device malfunction [Not Recovered/Not Resolved]
